FAERS Safety Report 26114001 (Version 1)
Quarter: 2025Q4

REPORT INFORMATION
  Report Type: Spontaneous
  Country: US (occurrence: US)
  Receive Date: 20251202
  Receipt Date: 20251202
  Transmission Date: 20260118
  Serious: No
  Sender: INCYTE
  Company Number: US-EVENT-005003

PATIENT
  Age: 71 Year

DRUGS (1)
  1. OPZELURA [Suspect]
     Active Substance: RUXOLITINIB PHOSPHATE
     Indication: Product used for unknown indication
     Dosage: 1.5 PERCENT (APPLY A THIN LAYER TO AFFECTED AREA(S) ON LEG TWICE DAILY FOR 2 WEEKS THEN STOP FOR 1 WEEK AND USE AS NEEDED AS DIRECTED)
     Route: 065

REACTIONS (1)
  - Arthropathy [Unknown]
